FAERS Safety Report 5989347-5 (Version None)
Quarter: 2008Q4

REPORT INFORMATION
  Report Type: 
  Country: None (occurrence: None)
  Receive Date: 20081210
  Receipt Date: 20081128
  Transmission Date: 20090506
  Serious: Yes (Other)
  Sender: FDA-Public Use
  Company Number: BR-PFIZER INC-2008085019

PATIENT

DRUGS (1)
  1. DEPO-PROVERA [Suspect]

REACTIONS (5)
  - AMENORRHOEA [None]
  - CRYING [None]
  - INFERTILITY FEMALE [None]
  - OVARIAN ATROPHY [None]
  - UTERINE ATROPHY [None]
